FAERS Safety Report 24311380 (Version 1)
Quarter: 2024Q3

REPORT INFORMATION
  Report Type: Spontaneous
  Country: US (occurrence: US)
  Receive Date: 20240912
  Receipt Date: 20240912
  Transmission Date: 20241017
  Serious: No
  Sender: AMGEN
  Company Number: US-AMGEN-USASP2024179921

PATIENT
  Age: 22 Year
  Sex: Female

DRUGS (1)
  1. PREDNISONE [Suspect]
     Active Substance: PREDNISONE
     Indication: PFAPA syndrome
     Dosage: 60 MILLIGRAM, QD
     Route: 065

REACTIONS (3)
  - Drug effective for unapproved indication [Unknown]
  - PFAPA syndrome [Recovering/Resolving]
  - Off label use [Unknown]
